FAERS Safety Report 12281051 (Version 1)
Quarter: 2016Q2

REPORT INFORMATION
  Report Type: Spontaneous
  Country: US (occurrence: None)
  Receive Date: 20160418
  Receipt Date: 20160418
  Transmission Date: 20160815
  Serious: Yes (Other)
  Sender: FDA-Public Use
  Company Number: None

PATIENT
  Age: 62 Year
  Sex: Female
  Weight: 58.3 kg

DRUGS (2)
  1. ONDANSETRON 4MG/2ML HERITAGE PHARMACEUTICALS, INC . [Suspect]
     Active Substance: ONDANSETRON
     Indication: NAUSEA
     Route: 042
  2. ONDANSETRON 4MG/2ML HERITAGE PHARMACEUTICALS, INC . [Suspect]
     Active Substance: ONDANSETRON
     Indication: VOMITING
     Route: 042

REACTIONS (1)
  - Torsade de pointes [None]

NARRATIVE: CASE EVENT DATE: 20160404
